FAERS Safety Report 7088212-2 (Version None)
Quarter: 2010Q4

REPORT INFORMATION
  Report Type: 
  Country: None (occurrence: None)
  Receive Date: 20101108
  Receipt Date: 20101021
  Transmission Date: 20110411
  Serious: Yes (Hospitalization)
  Sender: FDA-Public Use
  Company Number: US-BAYER-200941572NA

PATIENT
  Age: 21 Year
  Sex: Female
  Weight: 49 kg

DRUGS (3)
  1. YAZ [Suspect]
     Indication: MENSTRUATION IRREGULAR
     Dosage: PHARMACY RECORDS: 24 JUNE 2008, 29 JUL 2009,  15 SEP 2009
     Route: 048
     Dates: start: 20050101, end: 20090101
  2. YASMIN [Suspect]
     Indication: MENSTRUATION IRREGULAR
     Dosage: PHARMACY RECORDS: 26 FEB 2007, 14 MAY 2007
     Route: 048
     Dates: start: 20050101, end: 20090101
  3. UNKNOWN DRUG [Concomitant]
     Indication: LAXATIVE SUPPORTIVE CARE
     Route: 065

REACTIONS (10)
  - ABDOMINAL DISTENSION [None]
  - ABDOMINAL PAIN [None]
  - ABDOMINAL PAIN UPPER [None]
  - CHOLECYSTITIS CHRONIC [None]
  - DECREASED APPETITE [None]
  - DYSPEPSIA [None]
  - ERUCTATION [None]
  - HEPATOBILIARY SCAN ABNORMAL [None]
  - NAUSEA [None]
  - VOMITING [None]
